FAERS Safety Report 4457457-X (Version None)
Quarter: 2004Q3

REPORT INFORMATION
  Report Type: 
  Country: None (occurrence: None)
  Receive Date: 20040912
  Receipt Date: 20040915
  Transmission Date: 20050211
  Serious: Yes (Death)
  Sender: FDA-Public Use
  Company Number: 163-20785-04070694

PATIENT
  Age: 53 Year
  Sex: Male

DRUGS (1)
  1. THALOMID [Suspect]
     Indication: SARCOMA
     Dosage: 150 MG, QHS, ORAL
     Route: 048
     Dates: start: 20031231, end: 20040401

REACTIONS (3)
  - MALIGNANT NEOPLASM PROGRESSION [None]
  - SARCOMA [None]
  - SEPTIC SHOCK [None]
